FAERS Safety Report 16909346 (Version 2)
Quarter: 2019Q4

REPORT INFORMATION
  Report Type: Spontaneous
  Country: US (occurrence: US)
  Receive Date: 20191011
  Receipt Date: 20191018
  Transmission Date: 20200122
  Serious: Yes (Other)
  Sender: FDA-Public Use
  Company Number: US-MALLINCKRODT-T201906813

PATIENT
  Age: 55 Year
  Sex: Male
  Weight: 63.5 kg

DRUGS (5)
  1. NORMAL SALINE [Concomitant]
     Active Substance: SODIUM CHLORIDE
     Indication: PRODUCT USED FOR UNKNOWN INDICATION
     Dosage: 500 ML
     Route: 065
  2. HEPARIN [Concomitant]
     Active Substance: HEPARIN SODIUM
     Indication: ANTICOAGULANT THERAPY
     Dosage: 10000 U
     Route: 065
  3. UVADEX [Suspect]
     Active Substance: METHOXSALEN
     Dosage: UNK
     Route: 065
     Dates: start: 2019
  4. UVADEX [Suspect]
     Active Substance: METHOXSALEN
     Indication: LUNG TRANSPLANT REJECTION
     Dosage: UNK, EXTRACORPOREAL
     Route: 050
     Dates: start: 20190724, end: 20191001
  5. OXYGEN. [Concomitant]
     Active Substance: OXYGEN
     Indication: PRODUCT USED FOR UNKNOWN INDICATION
     Dosage: 6L
     Route: 065

REACTIONS (7)
  - Hypertension [Unknown]
  - Dyspnoea [Recovered/Resolved]
  - Rash macular [Recovered/Resolved]
  - Cough [Unknown]
  - Throat tightness [Unknown]
  - Increased bronchial secretion [Unknown]
  - Product use in unapproved indication [Unknown]

NARRATIVE: CASE EVENT DATE: 20190924
